FAERS Safety Report 9523996 (Version 1)
Quarter: 2013Q3

REPORT INFORMATION
  Report Type: Spontaneous
  Country: NZ (occurrence: None)
  Receive Date: 20130912
  Receipt Date: 20130912
  Transmission Date: 20140515
  Serious: Yes (Hospitalization)
  Sender: FDA-Public Use
  Company Number: USA/NEZ/13/0034547

PATIENT
  Age: 51 Year
  Sex: Female

DRUGS (3)
  1. QUETIAPINE [Suspect]
     Indication: PRODUCT USED FOR UNKNOWN INDICATION
     Route: 048
  2. CITALOPRAM (CITALOPRAM) [Suspect]
     Indication: PRODUCT USED FOR UNKNOWN INDICATION
     Route: 048
  3. ALCOHOL (ETHANOL) [Suspect]
     Indication: PRODUCT USED FOR UNKNOWN INDICATION

REACTIONS (21)
  - Intentional overdose [None]
  - Suicide attempt [None]
  - Hypotension [None]
  - Epistaxis [None]
  - Coma scale abnormal [None]
  - Unresponsive to stimuli [None]
  - Fall [None]
  - Ventricular extrasystoles [None]
  - Pneumonia aspiration [None]
  - Hypoaesthesia [None]
  - Electrocardiogram abnormal [None]
  - Electrocardiogram QRS complex prolonged [None]
  - Electrocardiogram QT prolonged [None]
  - Heart rate decreased [None]
  - Blood pressure decreased [None]
  - Hypothermia [None]
  - Blood pH decreased [None]
  - PCO2 increased [None]
  - PO2 increased [None]
  - Blood bicarbonate decreased [None]
  - Blood lactic acid increased [None]
